FAERS Safety Report 6658048-2 (Version None)
Quarter: 2010Q1

REPORT INFORMATION
  Report Type: 
  Country: None (occurrence: None)
  Receive Date: 20100325
  Receipt Date: 20100315
  Transmission Date: 20100710
  Serious: Yes (Hospitalization)
  Sender: FDA-Public Use
  Company Number: TCI2010A00776

PATIENT
  Age: 80 Year
  Sex: Female

DRUGS (1)
  1. LANSOPRAZOLE [Suspect]
     Dosage: PER ORAL
     Route: 048
     Dates: start: 20080101

REACTIONS (3)
  - COLITIS COLLAGENOUS [None]
  - GASTROINTESTINAL OEDEMA [None]
  - LARGE INTESTINAL ULCER [None]
